FAERS Safety Report 12423504 (Version 1)
Quarter: 2016Q2

REPORT INFORMATION
  Report Type: Spontaneous
  Country: US (occurrence: None)
  Receive Date: 20160531
  Receipt Date: 20160531
  Transmission Date: 20160815
  Serious: Yes (Disabling, Other)
  Sender: FDA-Public Use
  Company Number: None

PATIENT
  Age: 65 Year
  Sex: Female
  Weight: 63.5 kg

DRUGS (5)
  1. VITAMIN A [Concomitant]
     Active Substance: VITAMIN A
  2. HARVONI [Suspect]
     Active Substance: LEDIPASVIR\SOFOSBUVIR
     Indication: HEPATITIS C
     Route: 048
  3. ZANEX [Concomitant]
  4. ALDACTONE [Concomitant]
     Active Substance: SPIRONOLACTONE
  5. SYNTHROID [Concomitant]
     Active Substance: LEVOTHYROXINE SODIUM

REACTIONS (22)
  - Vision blurred [None]
  - Cough [None]
  - Influenza like illness [None]
  - Chills [None]
  - Gait disturbance [None]
  - Palpitations [None]
  - Burning sensation [None]
  - Feeling abnormal [None]
  - Dizziness [None]
  - Lacrimation increased [None]
  - Pain [None]
  - Blood pressure increased [None]
  - Impaired driving ability [None]
  - Tinnitus [None]
  - Dysphonia [None]
  - Headache [None]
  - Chest discomfort [None]
  - Dyspnoea [None]
  - Insomnia [None]
  - Panic attack [None]
  - Fear [None]
  - Tremor [None]

NARRATIVE: CASE EVENT DATE: 20160502
